FAERS Safety Report 7339522-2 (Version None)
Quarter: 2011Q1

REPORT INFORMATION
  Report Type: 
  Country: None (occurrence: None)
  Receive Date: 20110308
  Receipt Date: 20110211
  Transmission Date: 20110831
  Serious: No
  Sender: FDA-Public Use
  Company Number: US-AMGEN-USASP2011008179

PATIENT
  Age: 69 Year
  Sex: Female

DRUGS (8)
  1. JANUVIA [Concomitant]
     Dosage: UNK MG, QD
  2. ACIPHEX [Concomitant]
  3. VITAMIN A [Concomitant]
  4. ACTOS [Concomitant]
     Dosage: UNK MG, QD
  5. CALCIUM [Concomitant]
  6. FOLIC ACID [Concomitant]
  7. METHOTREXATE [Concomitant]
  8. PROLIA [Suspect]
     Indication: OSTEOPOROSIS POSTMENOPAUSAL
     Dosage: 60 MG, Q6MO
     Dates: start: 20110210

REACTIONS (3)
  - ANXIETY [None]
  - BLOOD GLUCOSE INCREASED [None]
  - MALAISE [None]
